FAERS Safety Report 9148836 (Version 1)
Quarter: 2013Q1

REPORT INFORMATION
  Report Type: Spontaneous
  Country: DE (occurrence: DE)
  Receive Date: 20130308
  Receipt Date: 20130308
  Transmission Date: 20140127
  Serious: Yes (Congenital Anomaly)
  Sender: FDA-Public Use
  Company Number: DE-JNJFOC-20130217108

PATIENT
  Sex: Female
  Weight: 2.36 kg

DRUGS (5)
  1. TOPAMAX [Suspect]
     Indication: FOETAL EXPOSURE DURING PREGNANCY
     Dosage: SINCE 2006
     Route: 064
  2. FOLIC ACID [Concomitant]
     Route: 065
  3. IODINE [Concomitant]
     Route: 065
  4. MAGNESIUM [Concomitant]
     Route: 065
  5. IRON [Concomitant]
     Route: 065

REACTIONS (1)
  - Foot deformity [Unknown]
